FAERS Safety Report 14424203 (Version 1)
Quarter: 2018Q1

REPORT INFORMATION
  Report Type: Spontaneous
  Country: IT (occurrence: IT)
  Receive Date: 20180123
  Receipt Date: 20180123
  Transmission Date: 20180509
  Serious: Yes (Other)
  Sender: FDA-Public Use
  Company Number: IT-TEVA-2017-IT-839024

PATIENT
  Age: 88 Year
  Sex: Female

DRUGS (1)
  1. ALLOPURINOL TEVA [Suspect]
     Active Substance: ALLOPURINOL
     Route: 048
     Dates: start: 20170816, end: 20170826

REACTIONS (3)
  - Urticaria [Not Recovered/Not Resolved]
  - Pyrexia [Not Recovered/Not Resolved]
  - Toxic skin eruption [Not Recovered/Not Resolved]

NARRATIVE: CASE EVENT DATE: 20170816
